FAERS Safety Report 24200312 (Version 5)
Quarter: 2025Q2

REPORT INFORMATION
  Report Type: Spontaneous
  Country: US (occurrence: US)
  Receive Date: 20240812
  Receipt Date: 20250516
  Transmission Date: 20250717
  Serious: Yes (Hospitalization, Other)
  Sender: CATALYST PHARMA
  Company Number: US-CATALYST PHARMACEUTICALS, INC-US-CATA-24-00041

PATIENT
  Age: 30 Year
  Sex: Female
  Weight: 56.689 kg

DRUGS (11)
  1. FIRDAPSE [Suspect]
     Active Substance: AMIFAMPRIDINE PHOSPHATE
     Indication: Myasthenic syndrome
     Dosage: 1 TABLET DAILY
     Route: 048
     Dates: start: 20220129, end: 2022
  2. FIRDAPSE [Suspect]
     Active Substance: AMIFAMPRIDINE PHOSPHATE
     Dosage: ? TABLET THREE TIMES A DAY FOR FOUR DAYS INCREASE BY ? TABLET EVERY FOUR DAYS TO MAINTENANCE DOSE OF
     Route: 048
     Dates: start: 20220130, end: 2022
  3. FIRDAPSE [Suspect]
     Active Substance: AMIFAMPRIDINE PHOSPHATE
     Dosage: 2 TABLETS FOUR TIMES A DAY
     Route: 048
     Dates: start: 20221222
  4. MESTINON [Suspect]
     Active Substance: PYRIDOSTIGMINE BROMIDE
     Indication: Myasthenic syndrome
     Dosage: 60 MG, UP TO THREE TIMES PER DAY
     Route: 048
     Dates: start: 202112
  5. ASPIRIN [Concomitant]
     Active Substance: ASPIRIN
     Indication: Prophylaxis
     Dosage: 81 MG DAILY
     Route: 048
     Dates: start: 20240227
  6. GAVISCON CHEWABLE [Concomitant]
     Indication: Gastrooesophageal reflux disease
     Route: 065
  7. NOVOLOG [Concomitant]
     Active Substance: INSULIN ASPART
     Indication: Type 1 diabetes mellitus
     Dosage: 10 UNITS THREE TIMES A DAY, SLIDING SCALE WITH INSULIN PUMP
     Route: 058
  8. VITAMINS [Concomitant]
     Active Substance: VITAMINS
     Indication: Pregnancy
     Dosage: 4 TABLETS DAILY
     Route: 065
     Dates: start: 202305
  9. WOMAN^S MULTIVITAMIN [Concomitant]
     Indication: Product used for unknown indication
     Dosage: 2 TABLETS DAILY
     Route: 065
  10. ASPIRIN [Concomitant]
     Active Substance: ASPIRIN
     Indication: Diabetes mellitus
     Route: 065
  11. HUMAN IMMUNOGLOBULIN G [Concomitant]
     Active Substance: HUMAN IMMUNOGLOBULIN G
     Indication: Product used for unknown indication
     Route: 042
     Dates: start: 202112, end: 202209

REACTIONS (5)
  - Caesarean section [Unknown]
  - Pre-eclampsia [Unknown]
  - Gestational hypertension [Unknown]
  - Premature delivery [Unknown]
  - Pregnancy [Recovered/Resolved]

NARRATIVE: CASE EVENT DATE: 20231213
